FAERS Safety Report 10068633 (Version 3)
Quarter: 2014Q2

REPORT INFORMATION
  Report Type: Spontaneous
  Country: JP (occurrence: JP)
  Receive Date: 20140409
  Receipt Date: 20140611
  Transmission Date: 20141212
  Serious: Yes (Other)
  Sender: FDA-Public Use
  Company Number: JP-GLAXOSMITHKLINE-B0971688A

PATIENT
  Age: 85 Year
  Sex: Female
  Weight: 57 kg

DRUGS (3)
  1. TYKERB [Suspect]
     Indication: BREAST CANCER
     Dosage: 1250MG PER DAY
     Route: 048
     Dates: start: 20131111, end: 20140310
  2. XELODA [Suspect]
     Indication: BREAST CANCER
     Dosage: 1500MG TWICE PER DAY
     Route: 048
     Dates: start: 20131021, end: 20140217
  3. HERCEPTIN [Suspect]
     Indication: BREAST CANCER
     Route: 042
     Dates: start: 201106, end: 201206

REACTIONS (3)
  - Atrioventricular block second degree [Not Recovered/Not Resolved]
  - Peripheral arterial occlusive disease [Unknown]
  - Palmar-plantar erythrodysaesthesia syndrome [Unknown]
